FAERS Safety Report 7019810-X (Version None)
Quarter: 2010Q3

REPORT INFORMATION
  Report Type: 
  Country: None (occurrence: None)
  Receive Date: 20100922
  Receipt Date: 20100910
  Transmission Date: 20110219
  Serious: Yes (Other)
  Sender: FDA-Public Use
  Company Number: 2010MA002609

PATIENT
  Age: 49 Year
  Sex: Female

DRUGS (7)
  1. RAMIPRIL [Suspect]
     Indication: BLOOD PRESSURE ABNORMAL
     Dosage: 20 MG
  2. PAROXETINE TABLETS, 30MG (AELLC) (PAROXETINE) [Suspect]
     Indication: DEPRESSION
     Dosage: 30 MG
  3. AMISULPRIDE (AMISULPRIDE) [Suspect]
     Indication: SCHIZOPHRENIA
     Dosage: 200 MG
  4. CLOZARIL [Suspect]
     Indication: SCHIZOPHRENIA
     Dosage: 600 MG;QD;PO
     Route: 048
     Dates: start: 20050207
  5. LAMOTRIGINE [Suspect]
     Indication: SCHIZOPHRENIA
     Dosage: 50 MG
  6. CON MEDS [Concomitant]
  7. CLOZARIL [Concomitant]

REACTIONS (3)
  - BREAST ABSCESS [None]
  - BREAST CANCER [None]
  - CONTRALATERAL BREAST CANCER [None]
